FAERS Safety Report 8309100-7 (Version None)
Quarter: 2012Q2

REPORT INFORMATION
  Report Type: 
  Country: None (occurrence: None)
  Receive Date: 20120424
  Receipt Date: 20120419
  Transmission Date: 20120825
  Serious: Yes (Other)
  Sender: FDA-Public Use
  Company Number: JP-PFIZER INC-2012036295

PATIENT
  Age: 82 Year
  Sex: Male
  Weight: 51 kg

DRUGS (7)
  1. AMLODIPINE [Concomitant]
     Indication: HYPERTENSION
     Dosage: 5 MG, 1X/DAY
     Route: 048
     Dates: start: 20110604
  2. URSO 250 [Concomitant]
     Indication: HEPATITIS C
     Dosage: 100 MG, 3X/DAY
     Route: 048
     Dates: start: 20030909
  3. ASPIRIN [Concomitant]
     Indication: PERIPHERAL ARTERIAL OCCLUSIVE DISEASE
     Dosage: 100 MG, 1X/DAY
     Route: 048
     Dates: start: 20030701
  4. LYRICA [Suspect]
     Indication: POST HERPETIC NEURALGIA
     Dosage: 75 MG, 2X/DAY
     Route: 048
     Dates: start: 20110827, end: 20110924
  5. DEPAS [Concomitant]
     Indication: PSYCHOSOMATIC DISEASE
     Dosage: 0.5 MG, 1X/DAY
     Route: 048
     Dates: start: 20110328, end: 20110924
  6. GLYCYRON [Concomitant]
     Indication: HEPATITIS C
     Dosage: 2 DF, 3X/DAY
     Route: 048
     Dates: start: 20090220
  7. OMEPRAZOLE [Concomitant]
     Indication: GASTROOESOPHAGEAL REFLUX DISEASE
     Dosage: 20 MG, 1X/DAY
     Route: 048
     Dates: start: 20080304

REACTIONS (2)
  - DRUG RASH WITH EOSINOPHILIA AND SYSTEMIC SYMPTOMS [None]
  - RASH GENERALISED [None]
